FAERS Safety Report 10905580 (Version 1)
Quarter: 2015Q1

REPORT INFORMATION
  Report Type: Spontaneous
  Country: TW (occurrence: TW)
  Receive Date: 20150311
  Receipt Date: 20150311
  Transmission Date: 20150721
  Serious: Yes (Other)
  Sender: FDA-Public Use
  Company Number: TW-JNJFOC-20150219132

PATIENT
  Age: 65 Year
  Sex: Male

DRUGS (4)
  1. DOXORUBICIN HYDROCHLORIDE. [Suspect]
     Active Substance: DOXORUBICIN HYDROCHLORIDE
     Indication: HEPATOCELLULAR CARCINOMA
     Route: 013
  2. LIPIODOL [Suspect]
     Active Substance: ETHIODIZED OIL
     Indication: HEPATOCELLULAR CARCINOMA
     Route: 013
  3. GELFOAM [Suspect]
     Active Substance: GELATIN\THROMBIN HUMAN
     Indication: HEPATOCELLULAR CARCINOMA
     Route: 013
  4. CEFAZOLIN [Suspect]
     Active Substance: CEFAZOLIN
     Indication: HEPATOCELLULAR CARCINOMA
     Route: 013

REACTIONS (3)
  - Tumour lysis syndrome [Recovered/Resolved]
  - Incorrect route of drug administration [Unknown]
  - Product use issue [Unknown]
